FAERS Safety Report 13201114 (Version 1)
Quarter: 2017Q1

REPORT INFORMATION
  Report Type: Spontaneous
  Country: US (occurrence: US)
  Receive Date: 20170208
  Receipt Date: 20170208
  Transmission Date: 20170428
  Serious: Yes (Other)
  Sender: FDA-Public Use
  Company Number: US-BEH-2017077850

PATIENT
  Age: 10 Year
  Sex: Female

DRUGS (1)
  1. RIASTAP [Suspect]
     Active Substance: FIBRINOGEN HUMAN
     Indication: CONGENITAL COAGULOPATHY
     Dosage: 1000 (+/-10%) IU, QW
     Route: 042
     Dates: start: 20150811

REACTIONS (2)
  - Head injury [Unknown]
  - Laceration [Unknown]

NARRATIVE: CASE EVENT DATE: 20170115
